FAERS Safety Report 10075815 (Version 1)
Quarter: 2014Q2

REPORT INFORMATION
  Report Type: Spontaneous
  Country: JP (occurrence: JP)
  Receive Date: 20140414
  Receipt Date: 20140414
  Transmission Date: 20141212
  Serious: Yes (Hospitalization)
  Sender: FDA-Public Use
  Company Number: US-ASTRAZENECA-2014SE25783

PATIENT
  Age: 70 Year
  Sex: Female

DRUGS (4)
  1. ECARD LD [Suspect]
     Indication: HYPERTENSION
     Route: 048
  2. ARIMIDEX [Concomitant]
     Dosage: UNK
     Route: 048
  3. TSUMURA JUZENTAIHOTO [Concomitant]
     Dosage: UNK
     Route: 048
  4. TSUMURA KEISHIBUKURYOGAN [Concomitant]
     Dosage: UNK
     Route: 048

REACTIONS (3)
  - Heart rate decreased [Unknown]
  - Renal impairment [Unknown]
  - Blood potassium increased [Unknown]
